FAERS Safety Report 8790050 (Version 2)
Quarter: 2012Q4

REPORT INFORMATION
  Report Type: 
  Country: SE (occurrence: SE)
  Receive Date: 20120917
  Receipt Date: 20120920
  Transmission Date: 20130627
  Serious: Yes (Death)
  Sender: FDA-Public Use
  Company Number: SE-TEVA-357293ISR

PATIENT
  Age: 24 Year
  Sex: Male

DRUGS (5)
  1. OXAZEPAM [Suspect]
     Route: 065
  2. MORPHINE [Suspect]
     Indication: OVERDOSE
     Route: 065
  3. BUPRENORPHINE [Suspect]
     Route: 065
  4. TRAMADOL [Concomitant]
     Route: 065
  5. DIAZEPAM [Concomitant]
     Route: 065

REACTIONS (1)
  - Overdose [Fatal]
